FAERS Safety Report 5689750-7 (Version None)
Quarter: 2008Q1

REPORT INFORMATION
  Report Type: 
  Country: None (occurrence: None)
  Receive Date: 20080328
  Receipt Date: 20080320
  Transmission Date: 20080703
  Serious: Yes (Hospitalization)
  Sender: FDA-Public Use
  Company Number: VISP-PR-0803S-0157

PATIENT
  Age: 72 Year
  Sex: Male

DRUGS (2)
  1. VISIPAQUE [Suspect]
     Indication: CARDIAC STRESS TEST ABNORMAL
     Dosage: 120 ML,SINGLE DOSE, I.A.
     Dates: start: 20080320, end: 20080320
  2. VISIPAQUE [Suspect]
     Indication: VASCULAR GRAFT
     Dosage: 120 ML,SINGLE DOSE, I.A.
     Dates: start: 20080320, end: 20080320

REACTIONS (3)
  - CHILLS [None]
  - HAEMATOMA [None]
  - INJECTION SITE HAEMORRHAGE [None]
